FAERS Safety Report 12075102 (Version 1)
Quarter: 2016Q1

REPORT INFORMATION
  Report Type: Report from Study
  Country: US (occurrence: US)
  Receive Date: 20160212
  Receipt Date: 20160212
  Transmission Date: 20160526
  Serious: Yes (Hospitalization, Other)
  Sender: FDA-Public Use
  Company Number: US-ABBVIE-16P-163-1556122-00

PATIENT
  Sex: Female

DRUGS (4)
  1. LUPRON DEPOT [Suspect]
     Active Substance: LEUPROLIDE ACETATE
     Indication: ENDOMETRIOSIS
     Route: 050
  2. INAPSINE [Suspect]
     Active Substance: DROPERIDOL
     Indication: CHOLECYSTECTOMY
  3. LUPRON DEPOT [Suspect]
     Active Substance: LEUPROLIDE ACETATE
     Route: 050
     Dates: start: 2003
  4. INAPSINE [Suspect]
     Active Substance: DROPERIDOL
     Indication: LAPAROSCOPY
     Route: 065

REACTIONS (10)
  - Allergic respiratory symptom [Recovered/Resolved]
  - Endometriosis [Unknown]
  - Hot flush [Recovered/Resolved]
  - Mood swings [Recovered/Resolved]
  - Weight increased [Recovered/Resolved]
  - Pelvic pain [Not Recovered/Not Resolved]
  - Bone density decreased [Unknown]
  - Arthralgia [Recovered/Resolved]
  - Cholecystectomy [Unknown]
  - Alopecia [Recovered/Resolved]

NARRATIVE: CASE EVENT DATE: 2003
